FAERS Safety Report 10011380 (Version 2)
Quarter: 2014Q1

REPORT INFORMATION
  Report Type: Spontaneous
  Country: US (occurrence: US)
  Receive Date: 20140314
  Receipt Date: 20140314
  Transmission Date: 20141002
  Serious: Yes (Other)
  Sender: FDA-Public Use
  Company Number: US-GE HEALTHCARE MEDICAL DIAGNOSTICS-OSCN-PR-1101S-0046

PATIENT
  Sex: Male

DRUGS (9)
  1. OMNISCAN [Suspect]
     Indication: NEUROPATHY PERIPHERAL
     Route: 042
     Dates: start: 19940415, end: 19940415
  2. OMNISCAN [Suspect]
     Route: 042
     Dates: start: 20031114, end: 20031114
  3. MAGNEVIST [Suspect]
     Indication: RENAL CYST
     Route: 042
     Dates: start: 20050617, end: 20050617
  4. MAGNEVIST [Suspect]
     Indication: PAIN IN EXTREMITY
     Route: 042
     Dates: start: 20050628, end: 20050628
  5. MAGNEVIST [Suspect]
     Indication: THYROID MASS
  6. VERAPAMIL [Concomitant]
  7. DIOVAN [Concomitant]
  8. CELEBREX [Concomitant]
  9. HCTZ [Concomitant]

REACTIONS (1)
  - Nephrogenic systemic fibrosis [Not Recovered/Not Resolved]
